FAERS Safety Report 8606099-0 (Version None)
Quarter: 2012Q3

REPORT INFORMATION
  Report Type: 
  Country: None (occurrence: None)
  Receive Date: 20120820
  Receipt Date: 20120112
  Transmission Date: 20120928
  Serious: Yes (Death)
  Sender: FDA-Public Use
  Company Number: US-ROCHE-1100865

PATIENT
  Sex: Male

DRUGS (2)
  1. CATHFLO ACTIVASE [Suspect]
     Indication: EMBOLISM
     Dosage: 2 DOSES
     Dates: start: 20100401
  2. CATHFLO ACTIVASE [Suspect]
     Dosage: 2 DOSES
     Dates: start: 20100405

REACTIONS (1)
  - DEATH [None]
